FAERS Safety Report 18510998 (Version 1)
Quarter: 2020Q4

REPORT INFORMATION
  Report Type: Spontaneous
  Country: US (occurrence: US)
  Receive Date: 20201116
  Receipt Date: 20201116
  Transmission Date: 20210114
  Serious: Yes (Death)
  Sender: FDA-Public Use
  Company Number: None

PATIENT
  Age: 68 Year
  Sex: Male

DRUGS (13)
  1. EVEROLIMUS 5MG (7TAB/CARD) [Suspect]
     Active Substance: EVEROLIMUS
     Indication: RENAL CANCER
     Route: 048
     Dates: start: 20201016, end: 20201111
  2. PATOPRAAZOLE [Concomitant]
  3. ONDANSETRON [Concomitant]
     Active Substance: ONDANSETRON
  4. ALPRAZOLAM. [Concomitant]
     Active Substance: ALPRAZOLAM
  5. DEXAMETHASON [Concomitant]
     Active Substance: DEXAMETHASONE
  6. NARCAN [Concomitant]
     Active Substance: NALOXONE HYDROCHLORIDE
  7. LOSARTAN POT [Concomitant]
     Active Substance: LOSARTAN POTASSIUM
  8. FAMOTIDINE. [Concomitant]
     Active Substance: FAMOTIDINE
  9. OXYCODONE [Concomitant]
     Active Substance: OXYCODONE
  10. VITAMIN D [Concomitant]
     Active Substance: VITAMIN D NOS
  11. ZOLPIDEM [Concomitant]
     Active Substance: ZOLPIDEM TARTRATE
  12. HYDROCO/APAP [Concomitant]
     Active Substance: ACETAMINOPHEN\HYDROCODONE
  13. MORPHINE SUL [Concomitant]
     Active Substance: MORPHINE SULFATE

REACTIONS (1)
  - Death [None]

NARRATIVE: CASE EVENT DATE: 20201111
